FAERS Safety Report 14539970 (Version 2)
Quarter: 2019Q1

REPORT INFORMATION
  Report Type: Spontaneous
  Country: US (occurrence: US)
  Receive Date: 20180216
  Receipt Date: 20190103
  Transmission Date: 20190417
  Serious: No
  Sender: FDA-Public Use
  Company Number: US-009507513-1802USA001402

PATIENT
  Sex: Female

DRUGS (1)
  1. DULERA [Suspect]
     Active Substance: FORMOTEROL FUMARATE DIHYDRATE\MOMETASONE FUROATE
     Dosage: STRENGTH: 100/5 MCG, ORAL INHALATION
     Route: 055

REACTIONS (6)
  - Nasal inflammation [Unknown]
  - Burning sensation [Unknown]
  - Product dose omission [Unknown]
  - No adverse event [Unknown]
  - Product quality issue [Unknown]
  - Sinusitis [Unknown]

NARRATIVE: CASE EVENT DATE: 201812
